FAERS Safety Report 4775991-X (Version None)
Quarter: 2005Q3

REPORT INFORMATION
  Report Type: 
  Country: None (occurrence: None)
  Receive Date: 20050922
  Receipt Date: 20050916
  Transmission Date: 20060218
  Serious: Yes (Other)
  Sender: FDA-Public Use
  Company Number: PHNR2005AU01417

PATIENT
  Sex: Female

DRUGS (2)
  1. ZOMETA [Suspect]
     Indication: BREAST CANCER METASTATIC
  2. PAMIDRONATE DISODIUM [Suspect]
     Indication: BREAST CANCER METASTATIC

REACTIONS (4)
  - ASEPTIC NECROSIS BONE [None]
  - BONE PAIN [None]
  - DENTAL TREATMENT [None]
  - PAIN IN JAW [None]
